FAERS Safety Report 25879457 (Version 1)
Quarter: 2025Q4

REPORT INFORMATION
  Report Type: Spontaneous
  Country: JP (occurrence: JP)
  Receive Date: 20251003
  Receipt Date: 20251003
  Transmission Date: 20260118
  Serious: Yes (Life-Threatening)
  Sender: INTERCHEM
  Company Number: JP-HQ SPECIALTY-JP-2025INT000074

PATIENT

DRUGS (2)
  1. DEXMEDETOMIDINE HYDROCHLORIDE [Suspect]
     Active Substance: DEXMEDETOMIDINE HYDROCHLORIDE
     Indication: Sedation
     Dosage: UNK, UNK
     Route: 065
  2. METHYLPREDNISOLONE [Concomitant]
     Active Substance: METHYLPREDNISOLONE
     Indication: Product used for unknown indication
     Dosage: 1 G, IN 1 D
     Route: 065

REACTIONS (4)
  - Glossoptosis [Recovered/Resolved]
  - Respiratory acidosis [Recovered/Resolved]
  - Cardiac arrest [Recovered/Resolved]
  - Bradycardia [Unknown]

NARRATIVE: CASE EVENT DATE: 20230101
